FAERS Safety Report 8382089-0 (Version None)
Quarter: 2012Q2

REPORT INFORMATION
  Report Type: 
  Country: None (occurrence: None)
  Receive Date: 20120511
  Receipt Date: 20120405
  Transmission Date: 20120825
  Serious: Yes (Life-Threatening, Other)
  Sender: FDA-Public Use
  Company Number: 2011030098

PATIENT
  Sex: Male
  Weight: 86.637 kg

DRUGS (13)
  1. LISINOPRIL [Concomitant]
  2. PROAIR (PROCATEROL HYDROCHLORIDE) [Concomitant]
  3. SINGULAIR [Concomitant]
  4. HIZENTRA [Suspect]
  5. FLONASE [Concomitant]
  6. ZYRTEC ALLERGY (CETIRIZINE HYDROCHLORIDE) [Concomitant]
  7. HIZENTRA [Suspect]
     Indication: HYPOGAMMAGLOBULINAEMIA
     Dosage: SEE IMAGE
     Route: 058
     Dates: start: 20110601
  8. HIZENTRA [Suspect]
     Indication: IMMUNODEFICIENCY
     Dosage: SEE IMAGE
     Route: 058
     Dates: start: 20110601
  9. HIZENTRA [Suspect]
  10. PATANASE [Concomitant]
  11. BISMUTH SUBSALICYLATE [Concomitant]
  12. HIZENTRA [Suspect]
  13. NAPROXEN [Concomitant]

REACTIONS (19)
  - HEPATITIS C [None]
  - ABDOMINAL PAIN UPPER [None]
  - ARTHRALGIA [None]
  - HEPATITIS B CORE ANTIBODY POSITIVE [None]
  - CHEST PAIN [None]
  - HEPATITIS B SURFACE ANTIBODY POSITIVE [None]
  - HAEMATOCHEZIA [None]
  - FATIGUE [None]
  - HYPERTENSION [None]
  - HEPATITIS A ANTIBODY POSITIVE [None]
  - FAECES DISCOLOURED [None]
  - ALANINE AMINOTRANSFERASE INCREASED [None]
  - ASPARTATE AMINOTRANSFERASE INCREASED [None]
  - MELAENA [None]
  - FAECES PALE [None]
  - RASH GENERALISED [None]
  - INFLAMMATORY BOWEL DISEASE [None]
  - PEPTIC ULCER [None]
  - ASTHMA [None]
